FAERS Safety Report 10168848 (Version 2)
Quarter: 2014Q2

REPORT INFORMATION
  Report Type: Spontaneous
  Country: US (occurrence: US)
  Receive Date: 20140513
  Receipt Date: 20140603
  Transmission Date: 20141212
  Serious: No
  Sender: FDA-Public Use
  Company Number: US-ROXANE LABORATORIES, INC.-2014-RO-00704RO

PATIENT
  Sex: Male

DRUGS (2)
  1. FLUTICASONE [Suspect]
     Indication: EAR DISORDER
     Route: 045
     Dates: start: 20140428
  2. NASAL DECONGESTANT [Concomitant]
     Route: 065

REACTIONS (2)
  - Drug ineffective for unapproved indication [Not Recovered/Not Resolved]
  - Product quality issue [Not Recovered/Not Resolved]
